FAERS Safety Report 18007625 (Version 3)
Quarter: 2020Q3

REPORT INFORMATION
  Report Type: Report from Study
  Country: CA (occurrence: CA)
  Receive Date: 20200710
  Receipt Date: 20200908
  Transmission Date: 20201103
  Serious: Yes (Other)
  Sender: FDA-Public Use
  Company Number: CA-JNJFOC-20200702993

PATIENT
  Age: 46 Year
  Sex: Female

DRUGS (2)
  1. STELARA [Suspect]
     Active Substance: USTEKINUMAB
     Indication: CROHN^S DISEASE
     Dosage: ON 30/JUN/2020, THE PATIENT RECEIVED 10TH INJECTION ON 30?JUN?2020 AND COMPLETED PARTIAL HARVEY?BRAD
     Route: 058
     Dates: start: 20180926
  2. STELARA [Suspect]
     Active Substance: USTEKINUMAB

REACTIONS (5)
  - Concussion [Unknown]
  - Diarrhoea [Unknown]
  - Diarrhoea haemorrhagic [Recovered/Resolved]
  - Abdominal pain [Unknown]
  - Frequent bowel movements [Unknown]

NARRATIVE: CASE EVENT DATE: 202006
